FAERS Safety Report 7527804-0 (Version None)
Quarter: 2011Q2

REPORT INFORMATION
  Report Type: 
  Country: None (occurrence: None)
  Receive Date: 20110607
  Receipt Date: 20110604
  Transmission Date: 20111010
  Serious: Yes (Other)
  Sender: FDA-Public Use
  Company Number: US-PFIZER INC-2011121786

PATIENT
  Sex: Female
  Weight: 114 kg

DRUGS (7)
  1. LIPITOR [Concomitant]
     Dosage: UNK
  2. CHANTIX [Suspect]
     Dosage: UNK
     Dates: start: 20110101, end: 20110603
  3. CHANTIX [Suspect]
     Indication: SMOKING CESSATION THERAPY
     Dosage: 0.5 MG, 1X/DAY
     Route: 048
     Dates: start: 20110528, end: 20110101
  4. PREMARIN [Concomitant]
     Dosage: UNK
  5. NAPROXEN (ALEVE) [Concomitant]
     Indication: FIBROMYALGIA
     Dosage: UNK
  6. NEXIUM [Concomitant]
     Indication: GASTROOESOPHAGEAL REFLUX DISEASE
     Dosage: UNK
  7. CYMBALTA [Concomitant]
     Dosage: 20 MG, UNK

REACTIONS (4)
  - ANXIETY [None]
  - ABDOMINAL DISCOMFORT [None]
  - TONGUE BLISTERING [None]
  - DEPRESSED MOOD [None]
